FAERS Safety Report 6755018-0 (Version None)
Quarter: 2010Q2

REPORT INFORMATION
  Report Type: 
  Country: None (occurrence: None)
  Receive Date: 20100602
  Receipt Date: 20100521
  Transmission Date: 20101027
  Serious: Yes (Hospitalization)
  Sender: FDA-Public Use
  Company Number: 2007US001498

PATIENT
  Age: 3 Year
  Sex: Male

DRUGS (1)
  1. TACROLIMUS [Suspect]
     Indication: DERMATITIS ATOPIC
     Dosage: 0.1 %, UID/QD, TOPICAL
     Route: 061
     Dates: start: 20040428

REACTIONS (7)
  - DEHYDRATION [None]
  - HAEMATEMESIS [None]
  - HYPOPHAGIA [None]
  - NAUSEA [None]
  - OTITIS MEDIA [None]
  - PHARYNGOTONSILLITIS [None]
  - POST PROCEDURAL HAEMORRHAGE [None]
